FAERS Safety Report 7709629-6 (Version None)
Quarter: 2011Q3

REPORT INFORMATION
  Report Type: 
  Country: None (occurrence: None)
  Receive Date: 20110825
  Receipt Date: 20110815
  Transmission Date: 20111222
  Serious: Yes (Hospitalization)
  Sender: FDA-Public Use
  Company Number: US-GLAXOSMITHKLINE-A0902045A

PATIENT
  Age: 75 Year
  Sex: Female

DRUGS (23)
  1. REQUIP [Suspect]
     Indication: PARKINSON'S DISEASE
     Dosage: 6MG THREE TIMES PER DAY
     Route: 048
     Dates: start: 20080101
  2. GALANTAMINE HYDROBROMIDE [Concomitant]
  3. PANTOPRAZOLE [Concomitant]
  4. ASPIRIN [Concomitant]
  5. ACIDOPHILUS [Concomitant]
  6. GABAPENTIN [Concomitant]
  7. ROPINIROLE [Suspect]
     Indication: PARKINSON'S DISEASE
     Dosage: 1TAB FOUR TIMES PER DAY
     Route: 048
     Dates: start: 20110101
  8. STALEVO 100 [Concomitant]
  9. NORVASC [Concomitant]
  10. CARBIDOPA AND LEVODOPA [Concomitant]
  11. LEVOTHROID [Concomitant]
  12. LAMOTRIGINE [Concomitant]
  13. AMLODIPINE [Concomitant]
  14. LORATADINE [Concomitant]
  15. DEPAKOTE [Concomitant]
  16. RISPERIDONE [Concomitant]
  17. MUCINEX [Concomitant]
  18. ALPRAZOLAM [Concomitant]
  19. ZOLPIDEM [Concomitant]
  20. AUGMENTIN '125' [Suspect]
     Indication: SINUSITIS
     Route: 048
     Dates: start: 20100701
  21. FLONASE [Suspect]
     Indication: RHINITIS ALLERGIC
     Dosage: 2SPR TWICE PER DAY
     Route: 045
     Dates: start: 20080101
  22. AMANTADINE HCL [Concomitant]
  23. IBUPROFEN [Concomitant]

REACTIONS (9)
  - PARKINSON'S DISEASE [None]
  - RASH [None]
  - PYREXIA [None]
  - BURNING SENSATION [None]
  - ALOPECIA [None]
  - TREMOR [None]
  - PNEUMONIA [None]
  - SKIN EXFOLIATION [None]
  - DRY SKIN [None]
